FAERS Safety Report 7525697-9 (Version None)
Quarter: 2011Q2

REPORT INFORMATION
  Report Type: 
  Country: None (occurrence: None)
  Receive Date: 20110526
  Receipt Date: 20110516
  Transmission Date: 20111010
  Serious: Yes (Congenital Anomaly)
  Sender: FDA-Public Use
  Company Number: DSM-2010-00202

PATIENT
  Age: 29 Year
  Sex: Female
  Weight: 83 kg

DRUGS (2)
  1. ASPIRIN [Concomitant]
  2. OLMESARTAN MEDOXOMIL [Suspect]
     Indication: HYPERTENSION
     Dosage: 10 MG, ORAL
     Route: 048
     Dates: start: 20040101

REACTIONS (6)
  - OLIGOHYDRAMNIOS [None]
  - AMNIOTIC FLUID VOLUME DECREASED [None]
  - MATERNAL DRUGS AFFECTING FOETUS [None]
  - ABORTION INDUCED [None]
  - PULMONARY HYPOPLASIA [None]
  - CONGENITAL RENAL DISORDER [None]
